FAERS Safety Report 4856241-2 (Version None)
Quarter: 2005Q4

REPORT INFORMATION
  Report Type: 
  Country: None (occurrence: None)
  Receive Date: 20051214
  Receipt Date: 20051214
  Transmission Date: 20060501
  Serious: No
  Sender: FDA-Public Use
  Company Number: None

PATIENT
  Age: 84 Year
  Sex: Male

DRUGS (6)
  1. POLYETHYLENE GLYCOL [Suspect]
     Indication: CONSTIPATION
     Dosage: MIX AND DRINK 1 CAPFUL TWICE A DAY (DURATION: APPROX ONE YEAR)
  2. PLAVIX [Concomitant]
  3. SINGULAIR [Concomitant]
  4. ZOCOR [Concomitant]
  5. QUININE SULFATE [Concomitant]
  6. BENICAR [Concomitant]

REACTIONS (1)
  - THERAPEUTIC RESPONSE UNEXPECTED WITH DRUG SUBSTITUTION [None]
